FAERS Safety Report 22601777 (Version 1)
Quarter: 2023Q2

REPORT INFORMATION
  Report Type: Spontaneous
  Country: US (occurrence: None)
  Receive Date: 20230613
  Receipt Date: 20230613
  Transmission Date: 20230721
  Serious: No
  Sender: FDA-Public Use
  Company Number: None

PATIENT
  Sex: Female

DRUGS (13)
  1. VERZENIO [Suspect]
     Active Substance: ABEMACICLIB
     Indication: Breast cancer female
     Dosage: FREQUENCY : TWICE A DAY;?
     Route: 048
  2. METFORMIN [Concomitant]
     Active Substance: METFORMIN HYDROCHLORIDE
  3. ARIMIDEX [Concomitant]
     Active Substance: ANASTROZOLE
  4. MAGNESIUM [Concomitant]
     Active Substance: MAGNESIUM
  5. HERBALS\TURMERIC [Concomitant]
     Active Substance: HERBALS\TURMERIC
  6. FIRAC PLUS [Concomitant]
  7. LIBERTRIM ALFA [Concomitant]
  8. FASLODEX [Concomitant]
     Active Substance: FULVESTRANT
  9. ZOFRAN [Concomitant]
     Active Substance: ONDANSETRON HYDROCHLORIDE
  10. LOPERAMIDE [Concomitant]
     Active Substance: LOPERAMIDE
  11. IBUPROFEN [Concomitant]
     Active Substance: IBUPROFEN
  12. TRIAMTERENE [Concomitant]
     Active Substance: TRIAMTERENE
  13. LIDOCAINE [Concomitant]
     Active Substance: LIDOCAINE

REACTIONS (2)
  - Breast cancer female [None]
  - Disease progression [None]
